FAERS Safety Report 8779484 (Version 2)
Quarter: 2012Q4

REPORT INFORMATION
  Report Type: 
  Country: US (occurrence: US)
  Receive Date: 20120912
  Receipt Date: 20120924
  Transmission Date: 20130627
  Serious: Yes (Hospitalization)
  Sender: FDA-Public Use
  Company Number: US-ACTELION-A-NJ2012-70336

PATIENT
  Age: 41 Year
  Sex: Female

DRUGS (4)
  1. TRACLEER [Suspect]
     Indication: PULMONARY ARTERIAL HYPERTENSION
     Dosage: 125 mg, bid
     Route: 048
     Dates: start: 201208, end: 201208
  2. TRACLEER [Suspect]
     Dosage: 62.5 mg, UNK
     Route: 048
     Dates: start: 201208
  3. TRACLEER [Suspect]
     Dosage: 62.5 mg, bid
     Route: 048
     Dates: start: 201207, end: 201208
  4. VENTAVIS [Suspect]
     Indication: PULMONARY ARTERIAL HYPERTENSION
     Dosage: 5 ?g, UNK
     Route: 055
     Dates: start: 201208

REACTIONS (7)
  - Congenital coronary artery malformation [Recovered/Resolved]
  - Cardiac operation [Recovered/Resolved]
  - Syncope [Recovered/Resolved]
  - Migraine [Recovered/Resolved]
  - Lethargy [Recovered/Resolved]
  - Presyncope [Recovered/Resolved]
  - Asthenia [Recovered/Resolved]
